FAERS Safety Report 9196783 (Version 1)
Quarter: 2013Q1

REPORT INFORMATION
  Report Type: Spontaneous
  Country: US (occurrence: US)
  Receive Date: 20130328
  Receipt Date: 20130328
  Transmission Date: 20140127
  Serious: Yes (Hospitalization)
  Sender: FDA-Public Use
  Company Number: US-MYLANLABS-2013S1006050

PATIENT
  Age: 42 Year
  Sex: Female
  Weight: 57.15 kg

DRUGS (1)
  1. ALBUTEROL SULFATE [Suspect]
     Route: 047
     Dates: start: 20120112, end: 20120112

REACTIONS (4)
  - Blindness transient [Recovered/Resolved]
  - Vision blurred [Not Recovered/Not Resolved]
  - Dry eye [Not Recovered/Not Resolved]
  - Wrong drug administered [Recovered/Resolved]
